FAERS Safety Report 18737668 (Version 2)
Quarter: 2021Q1

REPORT INFORMATION
  Report Type: Spontaneous
  Country: US (occurrence: US)
  Receive Date: 20210113
  Receipt Date: 20210305
  Transmission Date: 20210419
  Serious: No
  Sender: FDA-Public Use
  Company Number: US-VIFOR (INTERNATIONAL) INC.-VIT-2020-12179

PATIENT
  Age: 74 Year
  Sex: Male
  Weight: 88.53 kg

DRUGS (4)
  1. VELTASSA [Suspect]
     Active Substance: PATIROMER
     Route: 048
     Dates: start: 2021
  2. VELTASSA [Suspect]
     Active Substance: PATIROMER
     Indication: HYPERKALAEMIA
     Route: 048
     Dates: start: 2020
  3. LASIX [Concomitant]
     Active Substance: FUROSEMIDE
     Dates: start: 2020
  4. LASIX [Concomitant]
     Active Substance: FUROSEMIDE
     Dates: start: 2020

REACTIONS (2)
  - Fluid retention [Recovering/Resolving]
  - Off label use [Unknown]

NARRATIVE: CASE EVENT DATE: 2020
